FAERS Safety Report 17264892 (Version 1)
Quarter: 2020Q1

REPORT INFORMATION
  Report Type: Report from Study
  Country: CA (occurrence: CA)
  Receive Date: 20200113
  Receipt Date: 20200113
  Transmission Date: 20200409
  Serious: Yes (Other)
  Sender: FDA-Public Use
  Company Number: CA-HLSUS-2020-CA-000027

PATIENT
  Sex: Male

DRUGS (1)
  1. CLOZARIL [Suspect]
     Active Substance: CLOZAPINE
     Route: 048
     Dates: start: 20110530, end: 20191231

REACTIONS (4)
  - Gastroenteritis viral [Unknown]
  - Nasopharyngitis [Unknown]
  - Neutrophil count increased [Unknown]
  - Neutropenia [Unknown]
